FAERS Safety Report 4496378-3 (Version None)
Quarter: 2004Q4

REPORT INFORMATION
  Report Type: 
  Country: None (occurrence: None)
  Receive Date: 20041108
  Receipt Date: 20041108
  Transmission Date: 20050328
  Serious: Yes (Life-Threatening)
  Sender: FDA-Public Use
  Company Number: None

PATIENT
  Age: 36 Year
  Sex: Male
  Weight: 86.1834 kg

DRUGS (2)
  1. VIOXX [Suspect]
     Indication: ARTHRITIS
  2. VIOXX [Suspect]
     Indication: PAIN

REACTIONS (1)
  - CHEST PAIN [None]
